FAERS Safety Report 20532495 (Version 1)
Quarter: 2022Q1

REPORT INFORMATION
  Report Type: Spontaneous
  Country: US (occurrence: None)
  Receive Date: 20220301
  Receipt Date: 20220301
  Transmission Date: 20220423
  Serious: Yes (unspecified)
  Sender: FDA-Public Use
  Company Number: None

PATIENT
  Age: 72 Year
  Sex: Male
  Weight: 96 kg

DRUGS (1)
  1. FLUTICASONE PROPIONATE\SALMETEROL XINAFOATE [Suspect]
     Active Substance: FLUTICASONE PROPIONATE\SALMETEROL XINAFOATE
     Indication: Chronic obstructive pulmonary disease
     Dosage: 1 PUFF(S) BID INHALE?
     Route: 055
     Dates: start: 20211110, end: 20211113

REACTIONS (5)
  - Nasal congestion [None]
  - Nasal discomfort [None]
  - Myalgia [None]
  - Headache [None]
  - Oral discomfort [None]

NARRATIVE: CASE EVENT DATE: 20211119
